FAERS Safety Report 7599825-3 (Version None)
Quarter: 2011Q2

REPORT INFORMATION
  Report Type: 
  Country: None (occurrence: None)
  Receive Date: 20110629
  Receipt Date: 20110615
  Transmission Date: 20111010
  Serious: Yes (Other)
  Sender: FDA-Public Use
  Company Number: 2011MA007814

PATIENT
  Age: 78 Year
  Sex: Female

DRUGS (11)
  1. INDAPAMIDE [Concomitant]
  2. DONEPEZIL HCL [Suspect]
     Indication: DEMENTIA ALZHEIMER'S TYPE
     Dosage: 5 MG, QD, PO
     Route: 048
  3. SIMVASTATIN [Concomitant]
  4. ACETYLSALICYLIC ACID SRT [Concomitant]
  5. ATENOLOL [Concomitant]
  6. ADCAL-D3 [Concomitant]
  7. LEVOTHYROXINE SODIUM [Concomitant]
  8. IRBESARTAN [Concomitant]
  9. OMEPRAZOLE [Concomitant]
  10. ENOXAPARIN [Concomitant]
  11. ALENDRONIC ACID [Concomitant]

REACTIONS (2)
  - BUNDLE BRANCH BLOCK LEFT [None]
  - ELECTROCARDIOGRAM QT PROLONGED [None]
